FAERS Safety Report 9604204 (Version 2)
Quarter: 2013Q4

REPORT INFORMATION
  Report Type: Report from Study
  Country: AT (occurrence: AT)
  Receive Date: 20131008
  Receipt Date: 20131008
  Transmission Date: 20140711
  Serious: Yes (Death, Hospitalization)
  Sender: FDA-Public Use
  Company Number: AT-MERCK-1309AUT012396

PATIENT
  Sex: 0

DRUGS (1)
  1. TEMOZOLOMIDE [Suspect]
     Indication: METASTASES TO CENTRAL NERVOUS SYSTEM
     Dosage: 75 MG/M2/DAY DAILY DURING THE LAST 2 WEEKS FOR THE LONG RADIATION REGIMEN DURING THE WHOLE RADIATION
     Route: 048

REACTIONS (1)
  - Infection [Fatal]
